FAERS Safety Report 25330375 (Version 2)
Quarter: 2025Q3

REPORT INFORMATION
  Report Type: Spontaneous
  Country: US (occurrence: US)
  Receive Date: 20250519
  Receipt Date: 20250720
  Transmission Date: 20251020
  Serious: No
  Sender: JOHNSON AND JOHNSON
  Company Number: US-JNJFOC-20250509527

PATIENT
  Age: 47 Year
  Sex: Female

DRUGS (1)
  1. TREMFYA [Suspect]
     Active Substance: GUSELKUMAB
     Indication: Psoriasis
     Route: 065

REACTIONS (5)
  - Product dose omission issue [Unknown]
  - Needle issue [Unknown]
  - Device delivery system issue [Unknown]
  - Device malfunction [Unknown]
  - Device defective [Unknown]

NARRATIVE: CASE EVENT DATE: 20250506
